FAERS Safety Report 8138557-X (Version None)
Quarter: 2012Q1

REPORT INFORMATION
  Report Type: 
  Country: None (occurrence: None)
  Receive Date: 20120213
  Receipt Date: 20120207
  Transmission Date: 20120608
  Serious: Yes (Other)
  Sender: FDA-Public Use
  Company Number: GER/GER/12/0022949

PATIENT
  Age: 32 Year
  Sex: Female
  Weight: 75 kg

DRUGS (3)
  1. SERTRALINE HYDROCHLORIDE [Suspect]
     Indication: ANXIETY DISORDER
     Dosage: ORAL; 100 MG, ORAL
     Route: 048
     Dates: start: 20091201
  2. SERTRALINE HYDROCHLORIDE [Suspect]
     Indication: ANXIETY DISORDER
     Dosage: ORAL; 100 MG, ORAL
     Route: 048
  3. FOLSAEURE RATIOPHARM (FOLIC ACID) [Concomitant]

REACTIONS (3)
  - PREMATURE RUPTURE OF MEMBRANES [None]
  - CAESAREAN SECTION [None]
  - MATERNAL EXPOSURE DURING PREGNANCY [None]
